FAERS Safety Report 24529649 (Version 5)
Quarter: 2025Q2

REPORT INFORMATION
  Report Type: Report from Study
  Country: CO (occurrence: CO)
  Receive Date: 20241021
  Receipt Date: 20250425
  Transmission Date: 20250717
  Serious: Yes (Death, Hospitalization, Other)
  Sender: IPSEN BIOPHARMACEUTICALS, INC.
  Company Number: CO-IPSEN Group, Research and Development-2023-24608

PATIENT
  Age: 83 Year
  Sex: Female
  Weight: 44 kg

DRUGS (12)
  1. LANREOTIDE ACETATE [Suspect]
     Active Substance: LANREOTIDE ACETATE
     Indication: Neuroendocrine tumour
     Dosage: 120 MG DEEP SUBCUTANEOUS
     Route: 058
     Dates: start: 20220615
  2. LANREOTIDE ACETATE [Suspect]
     Active Substance: LANREOTIDE ACETATE
     Dosage: 120 MG DEEP SUBCUTANEOUS
     Route: 058
     Dates: end: 20241019
  3. TEMODAL [Concomitant]
     Active Substance: TEMOZOLOMIDE
     Indication: Lung neoplasm malignant
     Dosage: FOR 10 DAYS TAKE ONE TABLET EVERY NIGHT
     Route: 048
     Dates: start: 202307
  4. TEMODAL [Concomitant]
     Active Substance: TEMOZOLOMIDE
     Indication: Hepatic cancer
  5. NIFEDIPINE [Concomitant]
     Active Substance: NIFEDIPINE
     Indication: Hypertension
     Dosage: EVERY 24 HOURS
     Route: 048
  6. CARVELIDOL [Concomitant]
     Indication: Cardiac disorder
     Dosage: EVERY 12 HOURS
     Route: 048
  7. TEMOZOLOMIDE [Concomitant]
     Active Substance: TEMOZOLOMIDE
     Indication: Lung neoplasm malignant
     Dosage: 1 TABLET AT NIGHT
     Route: 048
     Dates: start: 2022
  8. TEMOZOLOMIDE [Concomitant]
     Active Substance: TEMOZOLOMIDE
     Indication: Hepatic cancer
     Dosage: 1 TABLET EVERY 24 HOURS FOR 5 DAYS.
     Route: 048
     Dates: start: 202309
  9. CAPECITABINE [Concomitant]
     Active Substance: CAPECITABINE
     Dosage: 1 TABLET EVERY 12 HOURS FOR 14 DAYS.
     Route: 048
  10. AMLODIPINE BESYLATE [Concomitant]
     Active Substance: AMLODIPINE BESYLATE
     Route: 048
  11. CLOPIDOGREL [Concomitant]
     Active Substance: CLOPIDOGREL BISULFATE
     Route: 048
  12. CARVEDILOL [Concomitant]
     Active Substance: CARVEDILOL
     Route: 048

REACTIONS (22)
  - Death [Fatal]
  - Blood glucose increased [Not Recovered/Not Resolved]
  - Burning sensation [Not Recovered/Not Resolved]
  - Malignant neoplasm progression [Not Recovered/Not Resolved]
  - Somnolence [Not Recovered/Not Resolved]
  - Decreased appetite [Not Recovered/Not Resolved]
  - Mobility decreased [Not Recovered/Not Resolved]
  - Weight increased [Not Recovered/Not Resolved]
  - Fall [Not Recovered/Not Resolved]
  - Hypoaesthesia [Not Recovered/Not Resolved]
  - Gait disturbance [Not Recovered/Not Resolved]
  - Pain in extremity [Not Recovered/Not Resolved]
  - Pain [Not Recovered/Not Resolved]
  - Back pain [Not Recovered/Not Resolved]
  - Weight decreased [Not Recovered/Not Resolved]
  - Peripheral swelling [Not Recovered/Not Resolved]
  - Arthralgia [Not Recovered/Not Resolved]
  - Musculoskeletal discomfort [Not Recovered/Not Resolved]
  - Product supply issue [Unknown]
  - Product dose omission issue [Unknown]
  - Intentional product misuse [Unknown]
  - Blood glucose increased [Not Recovered/Not Resolved]

NARRATIVE: CASE EVENT DATE: 20220601
